FAERS Safety Report 5658547-6 (Version None)
Quarter: 2008Q1

REPORT INFORMATION
  Report Type: 
  Country: None (occurrence: None)
  Receive Date: 20080310
  Receipt Date: 20070420
  Transmission Date: 20080703
  Serious: No
  Sender: FDA-Public Use
  Company Number: US-BAYER-200710634BCC

PATIENT
  Age: 82 Year
  Sex: Female
  Weight: 77 kg

DRUGS (5)
  1. ALEVE [Suspect]
     Indication: PAIN
     Dosage: TOTAL DAILY DOSE: 440 MG  UNIT DOSE: 220 MG
     Route: 048
     Dates: start: 20070301
  2. ATENOLOL [Concomitant]
  3. ST JOSEPHS 81 MG ASPIRIN [Concomitant]
  4. LOVASTATIN [Concomitant]
  5. CENTRUM SILVER [Concomitant]

REACTIONS (2)
  - FOREIGN BODY TRAUMA [None]
  - THROAT IRRITATION [None]
